FAERS Safety Report 18172250 (Version 2)
Quarter: 2020Q3

REPORT INFORMATION
  Report Type: Spontaneous
  Country: AU (occurrence: AU)
  Receive Date: 20200820
  Receipt Date: 20200821
  Transmission Date: 20201103
  Serious: No
  Sender: FDA-Public Use
  Company Number: AU-ROCHE-2224636

PATIENT
  Sex: Female
  Weight: 53.8 kg

DRUGS (2)
  1. AVASTIN [Suspect]
     Active Substance: BEVACIZUMAB
     Indication: DEAFNESS
  2. AVASTIN [Suspect]
     Active Substance: BEVACIZUMAB
     Indication: ACOUSTIC NEUROMA
     Route: 042

REACTIONS (3)
  - No adverse event [Unknown]
  - Intentional product use issue [Unknown]
  - Off label use [Unknown]
